FAERS Safety Report 4953693-4 (Version None)
Quarter: 2006Q1

REPORT INFORMATION
  Report Type: 
  Country: None (occurrence: None)
  Receive Date: 20060324
  Receipt Date: 20051028
  Transmission Date: 20060701
  Serious: Yes (Hospitalization)
  Sender: FDA-Public Use
  Company Number: US-MERCK-0510USA09952

PATIENT
  Age: 60 Year
  Sex: Male
  Weight: 73 kg

DRUGS (21)
  1. VIOXX [Suspect]
     Indication: RHEUMATOID ARTHRITIS
     Route: 048
     Dates: start: 20011101, end: 20040901
  2. HYDROCODONE BITARTRATE + ACETAMINOPHEN [Concomitant]
     Indication: RHEUMATOID ARTHRITIS
     Route: 048
     Dates: start: 20030601
  3. HYDROCODONE BITARTRATE + ACETAMINOPHEN [Concomitant]
     Route: 048
     Dates: start: 20031101
  4. HYDROCODONE BITARTRATE + ACETAMINOPHEN [Concomitant]
     Route: 048
     Dates: start: 20031101
  5. HYDROCODONE BITARTRATE + ACETAMINOPHEN [Concomitant]
     Route: 048
     Dates: start: 20031101
  6. HYDROCODONE BITARTRATE + ACETAMINOPHEN [Concomitant]
     Route: 048
     Dates: start: 20040201, end: 20040301
  7. OXACILLIN SODIUM [Concomitant]
     Route: 041
  8. RIFAMPIN [Concomitant]
     Indication: OSTEOMYELITIS
     Route: 048
     Dates: start: 20030101, end: 20050101
  9. METHOTREXATE [Concomitant]
     Indication: ARTHRITIS
     Route: 065
     Dates: start: 20030101, end: 20030401
  10. FOLIC ACID [Concomitant]
     Indication: RHEUMATOID ARTHRITIS
     Route: 065
     Dates: start: 20031201
  11. CELEBREX [Concomitant]
     Indication: RHEUMATOID ARTHRITIS
     Route: 065
     Dates: start: 20030301
  12. MOBIC [Concomitant]
     Indication: RHEUMATOID ARTHRITIS
     Route: 065
     Dates: start: 20030801
  13. IBUPROFEN [Concomitant]
     Indication: RHEUMATOID ARTHRITIS
     Route: 065
     Dates: start: 20030401
  14. PRILOSEC [Concomitant]
     Indication: GASTRIC DISORDER
     Route: 065
  15. PRILOSEC [Concomitant]
     Indication: PEPTIC ULCER
     Route: 065
  16. AZULFIDINE [Concomitant]
     Route: 065
  17. DYNAPEN [Concomitant]
     Indication: OSTEOMYELITIS
     Route: 065
  18. EPOGEN [Concomitant]
     Route: 065
  19. TRIMOX [Concomitant]
     Route: 065
  20. HYDROXYCHLOROQUINE SULFATE [Concomitant]
     Route: 065
  21. GLUCOTROL [Concomitant]
     Route: 065

REACTIONS (8)
  - ACUTE MYOCARDIAL INFARCTION [None]
  - ARTHRALGIA [None]
  - ATRIOVENTRICULAR BLOCK FIRST DEGREE [None]
  - BLOOD CHOLESTEROL INCREASED [None]
  - CARDIOVASCULAR DISORDER [None]
  - CORONARY ARTERY DISEASE [None]
  - HYPERTENSION [None]
  - INFECTION [None]
